FAERS Safety Report 24719040 (Version 1)
Quarter: 2024Q4

REPORT INFORMATION
  Report Type: Spontaneous
  Country: CN (occurrence: CN)
  Receive Date: 20241210
  Receipt Date: 20241210
  Transmission Date: 20250115
  Serious: Yes (Hospitalization, Other)
  Sender: MERCK
  Company Number: CN-009507513-2412CHN002771

PATIENT
  Sex: Female
  Weight: 52.7 kg

DRUGS (8)
  1. KEYTRUDA [Suspect]
     Active Substance: PEMBROLIZUMAB
     Indication: Gastric cancer
     Dosage: 200 MG, ONCE
     Route: 041
     Dates: start: 20241016, end: 20241016
  2. OXALIPLATIN [Suspect]
     Active Substance: OXALIPLATIN
     Indication: Gastric cancer
     Dosage: 150 MG, ONCE
     Route: 041
     Dates: start: 20241017, end: 20241017
  3. OXALIPLATIN [Suspect]
     Active Substance: OXALIPLATIN
     Dosage: 150 MG, ONCE
     Route: 041
     Dates: start: 202411, end: 202411
  4. CAPECITABINE [Suspect]
     Active Substance: CAPECITABINE
     Indication: Gastric cancer
     Dosage: 1000 MG, BID FOR 14 DAYS
     Route: 048
     Dates: start: 20241019, end: 20241101
  5. CAPECITABINE [Suspect]
     Active Substance: CAPECITABINE
     Dosage: 1000 MG, BID
     Route: 048
     Dates: start: 202411, end: 202411
  6. SODIUM CHLORIDE [Concomitant]
     Active Substance: SODIUM CHLORIDE
     Indication: Medication dilution
     Dosage: 100ML, ONCE
     Route: 041
     Dates: start: 20241016, end: 20241016
  7. DEXTROSE [Concomitant]
     Active Substance: DEXTROSE MONOHYDRATE
     Indication: Medication dilution
     Dosage: 500ML, ONCE
     Route: 041
     Dates: start: 20241017, end: 20241017
  8. DEXTROSE [Concomitant]
     Active Substance: DEXTROSE MONOHYDRATE
     Dosage: 500ML, ONCE
     Route: 041
     Dates: start: 202411, end: 202411

REACTIONS (9)
  - Cystitis [Recovering/Resolving]
  - Ureteritis [Recovering/Resolving]
  - Pyelocaliectasis [Unknown]
  - Nephritis [Recovering/Resolving]
  - Renal milk of calcium cyst [Unknown]
  - Renal cyst [Unknown]
  - Ureteric dilatation [Unknown]
  - Neutrophil count decreased [Unknown]
  - White blood cell count decreased [Unknown]

NARRATIVE: CASE EVENT DATE: 20241101
